FAERS Safety Report 22378980 (Version 2)
Quarter: 2024Q4

REPORT INFORMATION
  Report Type: Report from Study
  Country: ZA (occurrence: ZA)
  Receive Date: 20230529
  Receipt Date: 20241121
  Transmission Date: 20250115
  Serious: Yes (Other)
  Sender: ROCHE
  Company Number: ZA-ROCHE-3355617

PATIENT
  Age: 39 Year
  Sex: Male

DRUGS (2)
  1. OCREVUS [Suspect]
     Active Substance: OCRELIZUMAB
     Indication: Primary progressive multiple sclerosis
     Dosage: THEREAFTER 600MG EVERY 6 MONTHS
     Route: 041
     Dates: start: 20211118
  2. OCREVUS [Suspect]
     Active Substance: OCRELIZUMAB
     Dosage: THERE AFTER 600MG EVERY 6 MONTHS
     Route: 042
     Dates: start: 20211119

REACTIONS (2)
  - Multiple sclerosis [Unknown]
  - Magnetic resonance imaging abnormal [Unknown]
